FAERS Safety Report 19591849 (Version 2)
Quarter: 2021Q4

REPORT INFORMATION
  Report Type: Report from Study
  Country: US (occurrence: US)
  Receive Date: 20210721
  Receipt Date: 20211012
  Transmission Date: 20220303
  Serious: Yes (Other)
  Sender: FDA-Public Use
  Company Number: US-HORIZON THERAPEUTICS-HZN-2021-004618

PATIENT

DRUGS (5)
  1. BUPHENYL [Suspect]
     Active Substance: SODIUM PHENYLBUTYRATE
     Indication: Ornithine transcarbamoylase deficiency
     Dosage: UNK
     Route: 065
  2. RAVICTI [Concomitant]
     Active Substance: GLYCEROL PHENYLBUTYRATE
     Indication: Ornithine transcarbamoylase deficiency
     Route: 065
  3. SODIUM BENZOATE [Concomitant]
     Active Substance: SODIUM BENZOATE
     Indication: Product used for unknown indication
     Route: 065
  4. CITRULLINE [Concomitant]
     Active Substance: CITRULLINE
     Indication: Supplementation therapy
     Route: 065
  5. ESSENTIAL AMINO ACID MIX [Concomitant]
     Indication: Supplementation therapy
     Route: 065

REACTIONS (19)
  - Seizure [Unknown]
  - Learning disability [Unknown]
  - Developmental delay [Unknown]
  - Speech disorder [Unknown]
  - Nervous system disorder [Unknown]
  - Mobility decreased [Unknown]
  - Irritability [Unknown]
  - Agitation [Unknown]
  - Disease progression [Unknown]
  - General physical health deterioration [Unknown]
  - Drug intolerance [Unknown]
  - Unevaluable event [Unknown]
  - Disorientation [Unknown]
  - Confusional state [Unknown]
  - Vomiting [Unknown]
  - Fatigue [Unknown]
  - Memory impairment [Unknown]
  - Abdominal discomfort [Unknown]
  - Gastrointestinal pain [Unknown]
